FAERS Safety Report 5895903-5 (Version None)
Quarter: 2008Q3

REPORT INFORMATION
  Report Type: 
  Country: None (occurrence: None)
  Receive Date: 20080924
  Receipt Date: 20080917
  Transmission Date: 20090109
  Serious: Yes (Other)
  Sender: FDA-Public Use
  Company Number: US-ELI_LILLY_AND_COMPANY-US200809000956

PATIENT
  Sex: Female

DRUGS (8)
  1. HUMULIN R [Suspect]
     Indication: DIABETES MELLITUS
  2. HUMULIN N [Suspect]
     Indication: DIABETES MELLITUS
  3. BONIVA [Concomitant]
     Indication: OSTEOPOROSIS
     Dosage: 150 MG, UNK
     Route: 048
  4. OMEPRAZOLE [Concomitant]
     Indication: GASTROOESOPHAGEAL REFLUX DISEASE
     Dosage: 20 MG, 2/D
     Route: 048
  5. FLONASE [Concomitant]
     Dosage: 2 UNK, DAILY (1/D)
     Route: 045
  6. TOPROL-XL [Concomitant]
     Dosage: 25 MG, DAILY (1/D)
  7. TRICOR [Concomitant]
     Dosage: 48 MG, 2/D
     Route: 048
  8. ASPIRIN [Concomitant]
     Dosage: 81 MG, DAILY (1/D)

REACTIONS (5)
  - BLOOD GLUCOSE DECREASED [None]
  - CATARACT [None]
  - DIZZINESS [None]
  - FEAR [None]
  - IRON DEFICIENCY ANAEMIA [None]
